FAERS Safety Report 5860316-9 (Version None)
Quarter: 2008Q3

REPORT INFORMATION
  Report Type: 
  Country: None (occurrence: None)
  Receive Date: 20080827
  Receipt Date: 20080124
  Transmission Date: 20090109
  Serious: Yes (Other)
  Sender: FDA-Public Use
  Company Number: US-ABBOTT-06P-163-0407785-00

PATIENT
  Sex: Female
  Weight: 125 kg

DRUGS (7)
  1. COATED PDS [Suspect]
     Indication: BLOOD CHOLESTEROL INCREASED
     Route: 048
     Dates: start: 20060901, end: 20061001
  2. SERTRALINE HYDROCHLORIDE [Concomitant]
     Indication: ANXIETY
     Route: 048
  3. INDAPAMIDE [Concomitant]
     Indication: SWELLING
     Route: 048
     Dates: start: 20060301
  4. TIMOLOL [Concomitant]
     Indication: GLAUCOMA
     Route: 047
  5. IBUPROFEN [Concomitant]
     Indication: PROPHYLAXIS
     Route: 048
  6. IBUPROFEN [Concomitant]
     Indication: FLUSHING
  7. SERTRALINE [Concomitant]
     Indication: DEPRESSION
     Route: 048

REACTIONS (5)
  - DYSGEUSIA [None]
  - FLUSHING [None]
  - PRURITUS GENERALISED [None]
  - SWOLLEN TONGUE [None]
  - TOOTH DISORDER [None]
